FAERS Safety Report 22337896 (Version 4)
Quarter: 2023Q4

REPORT INFORMATION
  Report Type: Report from Study
  Country: CA (occurrence: CA)
  Receive Date: 20230518
  Receipt Date: 20231025
  Transmission Date: 20240110
  Serious: Yes (Other)
  Sender: FDA-Public Use
  Company Number: CA-JNJFOC-20230424763

PATIENT
  Sex: Male

DRUGS (2)
  1. STELARA [Suspect]
     Active Substance: USTEKINUMAB
     Indication: Crohn^s disease
     Route: 042
     Dates: start: 20220819
  2. STELARA [Suspect]
     Active Substance: USTEKINUMAB
     Dosage: INJECTION RECEIVED DATE: 11-APR-2023
     Route: 058

REACTIONS (7)
  - Crohn^s disease [Not Recovered/Not Resolved]
  - Haemorrhage [Recovering/Resolving]
  - Basal cell carcinoma [Not Recovered/Not Resolved]
  - Insomnia [Recovering/Resolving]
  - Muscle spasms [Unknown]
  - Gastrointestinal inflammation [Unknown]
  - Arthralgia [Not Recovered/Not Resolved]
